FAERS Safety Report 4678714-8 (Version None)
Quarter: 2005Q2

REPORT INFORMATION
  Report Type: 
  Country: None (occurrence: None)
  Receive Date: 20050531
  Receipt Date: 20050514
  Transmission Date: 20051028
  Serious: Yes (Other)
  Sender: FDA-Public Use
  Company Number: 2005074191

PATIENT
  Age: 13 Year
  Sex: Male
  Weight: 81.6475 kg

DRUGS (1)
  1. DRAMAMINE [Suspect]
     Dosage: 8 TABLETS ONCE, ORAL
     Route: 048
     Dates: start: 20050514, end: 20050514

REACTIONS (1)
  - DEPRESSED LEVEL OF CONSCIOUSNESS [None]
